FAERS Safety Report 20540658 (Version 1)
Quarter: 2022Q1

REPORT INFORMATION
  Report Type: Spontaneous
  Country: AR (occurrence: AR)
  Receive Date: 20220302
  Receipt Date: 20220302
  Transmission Date: 20220423
  Serious: Yes (Hospitalization, Other)
  Sender: FDA-Public Use
  Company Number: AR-PFIZER INC-202200214718

PATIENT
  Age: 85 Year
  Sex: Female

DRUGS (2)
  1. IBRANCE [Suspect]
     Active Substance: PALBOCICLIB
     Indication: Breast cancer metastatic
     Dosage: 125 MG ONCE DAILY (SCHEME 3X1)
     Dates: start: 202112
  2. FULVESTRANT [Concomitant]
     Active Substance: FULVESTRANT
     Dosage: UNK

REACTIONS (9)
  - Femur fracture [Unknown]
  - Pneumonia [Unknown]
  - Asthenia [Recovered/Resolved]
  - Coagulopathy [Unknown]
  - Pyrexia [Unknown]
  - Decreased immune responsiveness [Unknown]
  - Anaemia [Unknown]
  - Urinary tract infection [Unknown]
  - Post-traumatic stress disorder [Unknown]

NARRATIVE: CASE EVENT DATE: 20211211
